FAERS Safety Report 11301392 (Version 1)
Quarter: 2015Q3

REPORT INFORMATION
  Report Type: Spontaneous
  Country: CN (occurrence: None)
  Receive Date: 20150722
  Receipt Date: 20150722
  Transmission Date: 20151125
  Serious: Yes (Other)
  Sender: FDA-Public Use
  Company Number: COR_00332_2015

PATIENT
  Age: 31 Year
  Sex: Female

DRUGS (3)
  1. ETOPOSIDE (ETOPOSIDE) [Suspect]
     Active Substance: ETOPOSIDE
     Indication: BLADDER NEOPLASM
     Route: 042
     Dates: start: 201204, end: 201205
  2. CARBOPLATIN (CARBOPLATIN) [Suspect]
     Active Substance: CARBOPLATIN
     Indication: BLADDER NEOPLASM
     Dates: start: 201204, end: 201205
  3. BLEOMYCIN [Suspect]
     Active Substance: BLEOMYCIN SULFATE
     Indication: BLADDER NEOPLASM
     Dosage: DAYS 1,8 AND 15
     Route: 042
     Dates: start: 201204, end: 201205

REACTIONS (2)
  - Hydronephrosis [None]
  - Cystitis [None]

NARRATIVE: CASE EVENT DATE: 2012
